FAERS Safety Report 9107618 (Version 1)
Quarter: 2013Q1

REPORT INFORMATION
  Report Type: Report from Study
  Country: US (occurrence: US)
  Receive Date: 20130221
  Receipt Date: 20130221
  Transmission Date: 20140127
  Serious: Yes (Hospitalization, Other)
  Sender: FDA-Public Use
  Company Number: US-ABBOTT-13P-163-1049449-00

PATIENT
  Age: 34 Year
  Sex: Female

DRUGS (6)
  1. HUMIRA [Suspect]
     Indication: CROHN^S DISEASE
     Dates: start: 20121228
  2. RISPERIDONE [Concomitant]
     Indication: BIPOLAR DISORDER
  3. CELEXA [Concomitant]
     Indication: DEPRESSION
  4. AZATHIOPRINE [Concomitant]
     Indication: CROHN^S DISEASE
  5. TYLENOL [Concomitant]
     Indication: PAIN
  6. IBUPROFEN [Concomitant]
     Indication: PAIN

REACTIONS (9)
  - Anal fistula [Recovering/Resolving]
  - Anal abscess [Recovering/Resolving]
  - Rectal discharge [Unknown]
  - Abdominal pain [Unknown]
  - Defaecation urgency [Unknown]
  - Rectal tenesmus [Unknown]
  - Frequent bowel movements [Unknown]
  - Diarrhoea [Unknown]
  - Proctalgia [Unknown]
